FAERS Safety Report 19868219 (Version 1)
Quarter: 2021Q3

REPORT INFORMATION
  Report Type: Report from Study
  Country: None (occurrence: ES)
  Receive Date: 20210922
  Receipt Date: 20210922
  Transmission Date: 20211014
  Serious: Yes (Hospitalization)
  Sender: FDA-Public Use
  Company Number: ES-ABBVIE-21P-144-4016803-00

PATIENT
  Age: 72 Year
  Sex: Male
  Weight: 70 kg

DRUGS (5)
  1. VENETOCLAX. [Suspect]
     Active Substance: VENETOCLAX
     Indication: ACUTE MYELOID LEUKAEMIA
     Dosage: 26 JUL 2021: LAST DOSE TAKEN PRIOR TO EVENT.
     Route: 048
     Dates: start: 20210702
  2. AZACITIDINE. [Concomitant]
     Active Substance: AZACITIDINE
     Indication: ACUTE MYELOID LEUKAEMIA
     Dosage: 08 JUL 2021: LAST DOSE TAKEN PRIOR TO EVENT.
     Route: 058
     Dates: start: 20210702
  3. ALLOPURINOL. [Concomitant]
     Active Substance: ALLOPURINOL
     Indication: PRODUCT USED FOR UNKNOWN INDICATION
     Route: 048
  4. LEVOFLOXACIN. [Concomitant]
     Active Substance: LEVOFLOXACIN
     Indication: PRODUCT USED FOR UNKNOWN INDICATION
     Route: 048
  5. QUIZARTINIB [Concomitant]
     Active Substance: QUIZARTINIB
     Indication: ACUTE MYELOID LEUKAEMIA
     Dosage: 26 JUL 2021: LAST DOSE TAKEN PRIOR TO EVENT.
     Route: 048
     Dates: start: 20210709

REACTIONS (1)
  - Sinusitis [Recovered/Resolved]

NARRATIVE: CASE EVENT DATE: 20210727
